FAERS Safety Report 8709015 (Version 3)
Quarter: 2012Q4

REPORT INFORMATION
  Report Type: 
  Country: US (occurrence: US)
  Receive Date: 20120806
  Receipt Date: 20121001
  Transmission Date: 20130627
  Serious: Yes (Hospitalization)
  Sender: FDA-Public Use
  Company Number: US-ROCHE-1096588

PATIENT
  Age: 10 Year
  Sex: Male

DRUGS (2)
  1. NUTROPIN AQ [Suspect]
     Indication: PRODUCT USED FOR UNKNOWN INDICATION
     Dosage: Nutropin Nuspin 10
     Route: 058
     Dates: start: 20100802, end: 201202
  2. NUTROPIN AQ [Suspect]
     Route: 058
     Dates: start: 201203

REACTIONS (3)
  - Pharyngitis [Recovered/Resolved]
  - Tonsillectomy [Recovered/Resolved]
  - Adenoidectomy [Recovered/Resolved]
